FAERS Safety Report 16250679 (Version 1)
Quarter: 2019Q2

REPORT INFORMATION
  Report Type: Report from Study
  Country: GB (occurrence: GB)
  Receive Date: 20190429
  Receipt Date: 20190429
  Transmission Date: 20190711
  Serious: Yes (Hospitalization)
  Sender: FDA-Public Use
  Company Number: GB-PFIZER INC-2019177960

PATIENT

DRUGS (3)
  1. BENDAMUSTINE [BENDAMUSTINE HYDROCHLORIDE] [Suspect]
     Active Substance: BENDAMUSTINE HYDROCHLORIDE
     Indication: MANTLE CELL LYMPHOMA REFRACTORY
     Dosage: 70 MG/M2, CYCLIC (D1 AND D2) (28 DAY CYCLE)
     Dates: start: 20161214, end: 20181130
  2. CYTARABINE. [Suspect]
     Active Substance: CYTARABINE
     Indication: MANTLE CELL LYMPHOMA REFRACTORY
     Dosage: 500 MG/M2, CYCLIC (D1 TO D3) (28 DAY CYCLE, MEDIAN OF 4 CYCLE)
     Dates: start: 20161214, end: 20181130
  3. RITUXIMAB. [Suspect]
     Active Substance: RITUXIMAB
     Indication: MANTLE CELL LYMPHOMA REFRACTORY
     Dosage: UNK, CYCLIC (375 MG/M^2 OR 500 MG D1, 28 DAY CYCLE)
     Dates: start: 20161214, end: 20181130

REACTIONS (1)
  - Chondrocalcinosis pyrophosphate [Unknown]
